FAERS Safety Report 7690385-5 (Version None)
Quarter: 2011Q3

REPORT INFORMATION
  Report Type: 
  Country: None (occurrence: None)
  Receive Date: 20110818
  Receipt Date: 20110805
  Transmission Date: 20111222
  Serious: Yes (Hospitalization, Other)
  Sender: FDA-Public Use
  Company Number: IN-RANBAXY-2011RR-46845

PATIENT
  Age: 65 Year
  Sex: Female

DRUGS (2)
  1. LOSARTAN [Concomitant]
     Indication: ESSENTIAL HYPERTENSION
     Dosage: UNK
     Route: 065
  2. AMLODIPINE [Suspect]
     Indication: ESSENTIAL HYPERTENSION
     Dosage: 5 MG, UNK
     Route: 065

REACTIONS (1)
  - GINGIVAL HYPERTROPHY [None]
